FAERS Safety Report 26082184 (Version 1)
Quarter: 2025Q4

REPORT INFORMATION
  Report Type: Spontaneous
  Country: US (occurrence: None)
  Receive Date: 20251122
  Receipt Date: 20251122
  Transmission Date: 20260118
  Serious: Yes (Hospitalization)
  Sender: FDA-CTU
  Company Number: None

PATIENT
  Age: 55 Year
  Sex: Female
  Weight: 90 kg

DRUGS (1)
  1. WEGOVY [Suspect]
     Active Substance: SEMAGLUTIDE
     Indication: Weight decreased
     Dosage: 1 INJECTION SUBCUTANEOUS
     Route: 058
     Dates: start: 20251118, end: 20251118

REACTIONS (5)
  - Nausea [None]
  - Vomiting [None]
  - Migraine [None]
  - Self-medication [None]
  - Injection related reaction [None]

NARRATIVE: CASE EVENT DATE: 20251118
